FAERS Safety Report 5765952-6 (Version None)
Quarter: 2008Q2

REPORT INFORMATION
  Report Type: 
  Country: None (occurrence: None)
  Receive Date: 20080611
  Receipt Date: 20061219
  Transmission Date: 20081010
  Serious: Yes (Life-Threatening, Hospitalization, Other)
  Sender: FDA-Public Use
  Company Number: US-BRISTOL-MYERS SQUIBB COMPANY-14025134

PATIENT
  Sex: Male

DRUGS (1)
  1. CARBIDOPA + LEVODOPA [Suspect]
     Indication: PARKINSON'S DISEASE
     Dosage: TOOK 90 TABLETS ON 18-DEC-2006.
     Route: 048
     Dates: start: 20061218, end: 20061218

REACTIONS (1)
  - SUICIDE ATTEMPT [None]
